FAERS Safety Report 4515108-X (Version None)
Quarter: 2004Q4

REPORT INFORMATION
  Report Type: 
  Country: None (occurrence: None)
  Receive Date: 20041129
  Receipt Date: 20041129
  Transmission Date: 20050328
  Serious: No
  Sender: FDA-Public Use
  Company Number: None

PATIENT
  Sex: Male
  Weight: 109.1354 kg

DRUGS (18)
  1. PSYLLIUM SUGAR FREE POWDER, ORAL QUALITEST [Suspect]
     Indication: CONSTIPATION
     Dosage: 2 TSP TID ORAL
     Route: 048
     Dates: start: 19991103, end: 20041126
  2. ALBUTEROL [Concomitant]
  3. ALPROSTADIL [Concomitant]
  4. FELODIPINE SA [Concomitant]
  5. FLUNISOLIDE [Concomitant]
  6. GABAPENTIN [Concomitant]
  7. GEMFIBROZIL [Concomitant]
  8. GLYBURIDE [Concomitant]
  9. ISOSORBIDE DINITRATE [Concomitant]
  10. LACTULOSE [Concomitant]
  11. MECLIZINE HCL [Concomitant]
  12. METHADONE [Concomitant]
  13. METOLAZONE [Concomitant]
  14. NITROGLYCERIN [Concomitant]
  15. POTASSIUM CL [Concomitant]
  16. RANITIDINE HCL [Concomitant]
  17. SIMVASTATIN [Concomitant]
  18. TERAZOSIN HCL [Concomitant]

REACTIONS (5)
  - DRUG EFFECT DECREASED [None]
  - NAUSEA [None]
  - PHARMACEUTICAL PRODUCT COMPLAINT [None]
  - STOMACH DISCOMFORT [None]
  - VOMITING [None]
